FAERS Safety Report 5166979-8 (Version None)
Quarter: 2006Q4

REPORT INFORMATION
  Report Type: 
  Country: None (occurrence: None)
  Receive Date: 20061129
  Receipt Date: 20061116
  Transmission Date: 20070319
  Serious: Yes (Death, Hospitalization)
  Sender: FDA-Public Use
  Company Number: 2006142722

PATIENT
  Age: 62 Year
  Sex: Male
  Weight: 57 kg

DRUGS (6)
  1. PREGABALIN (PREGABALIN) [Suspect]
     Indication: NEURALGIA
     Dosage: 150 MG (75 M, 2 IN 1 D),ORAL
     Route: 048
     Dates: start: 20061110, end: 20061113
  2. METAMIZOL NATRIUM (METAMIZOLE SODIUM) [Concomitant]
  3. KETOPROFEN [Concomitant]
  4. METOCLOPRAMIDE [Concomitant]
  5. DROTAVERINE (DROTAVERINE) [Concomitant]
  6. DIHYDROCODEINE COMPOUND [Concomitant]

REACTIONS (3)
  - CONSTIPATION [None]
  - INSOMNIA [None]
  - RESTLESSNESS [None]
